FAERS Safety Report 19218056 (Version 3)
Quarter: 2021Q2

REPORT INFORMATION
  Report Type: Spontaneous
  Country: US (occurrence: US)
  Receive Date: 20210502
  Receipt Date: 20210518
  Transmission Date: 20210717
  Serious: No
  Sender: FDA-Public Use
  Company Number: US-ORGANON-O2104USA001839

PATIENT
  Age: 23 Year
  Sex: Female

DRUGS (1)
  1. NEXPLANON [Suspect]
     Active Substance: ETONOGESTREL
     Indication: CONTRACEPTION
     Dosage: 68 MG ONCE, LEFT ARM
     Route: 059
     Dates: start: 20181119, end: 20210419

REACTIONS (5)
  - Headache [Recovering/Resolving]
  - Device breakage [Recovered/Resolved]
  - Complication of device removal [Recovered/Resolved]
  - Dizziness [Recovering/Resolving]
  - Menstruation irregular [Recovering/Resolving]

NARRATIVE: CASE EVENT DATE: 202102
